FAERS Safety Report 18929348 (Version 1)
Quarter: 2021Q1

REPORT INFORMATION
  Report Type: Spontaneous
  Country: FR (occurrence: FR)
  Receive Date: 20210223
  Receipt Date: 20210223
  Transmission Date: 20210420
  Serious: Yes (Other)
  Sender: FDA-Public Use
  Company Number: FR-TEVA-2021-FR-1882383

PATIENT
  Age: 103 Year
  Sex: Female

DRUGS (10)
  1. FUMAFER 66 MG, COMPRIME PELLICULE [Suspect]
     Active Substance: FERROUS FUMARATE
     Indication: PRODUCT ADMINISTRATION ERROR
     Dosage: 1 DF
     Route: 048
     Dates: start: 20201217, end: 20201217
  2. ACIDE FOLIQUE [Suspect]
     Active Substance: FOLIC ACID
     Indication: PRODUCT ADMINISTRATION ERROR
     Dosage: 5 MG
     Route: 048
     Dates: start: 20201217, end: 20201217
  3. VIMPAT [Suspect]
     Active Substance: LACOSAMIDE
     Indication: PRODUCT ADMINISTRATION ERROR
     Dosage: 1 DF
     Route: 048
     Dates: start: 20201217, end: 20201217
  4. DIFFU K, GELULE [Suspect]
     Active Substance: POTASSIUM CHLORIDE
     Indication: PRODUCT ADMINISTRATION ERROR
     Dosage: 1 DF
     Route: 048
     Dates: start: 20201217, end: 20201217
  5. FURADANTINE 50 MG, GELULE [Suspect]
     Active Substance: NITROFURANTOIN
     Indication: PRODUCT ADMINISTRATION ERROR
     Dosage: 2 DF
     Route: 048
     Dates: start: 20201217, end: 20201217
  6. ZYMAD 80 000 UI, SOLUTION BUVABLE EN AMPOULE [Suspect]
     Active Substance: CHOLECALCIFEROL
     Indication: PRODUCT ADMINISTRATION ERROR
     Dosage: 1 DF
     Route: 048
     Dates: start: 20201217, end: 20201217
  7. MACROGOL (DISTEARATE DE) [Suspect]
     Active Substance: POLYETHYLENE GLYCOLS
     Indication: PRODUCT ADMINISTRATION ERROR
     Dosage: 1 DF
     Route: 048
     Dates: start: 20201217, end: 20201217
  8. RAMIPRIL. [Suspect]
     Active Substance: RAMIPRIL
     Indication: PRODUCT ADMINISTRATION ERROR
     Dosage: 2.5 MG
     Route: 048
     Dates: start: 20201217, end: 20201217
  9. BISOCE 1,25 MG, COMPRIME PELLICULE [Suspect]
     Active Substance: BISOPROLOL FUMARATE
     Indication: PRODUCT ADMINISTRATION ERROR
     Dosage: 1 DF
     Route: 048
     Dates: start: 20201217, end: 20201217
  10. DOLIPRANE [Suspect]
     Active Substance: ACETAMINOPHEN
     Indication: PRODUCT ADMINISTRATION ERROR
     Dosage: 2 DF
     Route: 048
     Dates: start: 20201217, end: 20201217

REACTIONS (6)
  - Product administration error [Recovered/Resolved]
  - Bradycardia [Recovered/Resolved]
  - Hypotension [Recovered/Resolved]
  - Loss of consciousness [Recovered/Resolved]
  - Malaise [Recovered/Resolved]
  - Wrong patient received product [Recovered/Resolved]

NARRATIVE: CASE EVENT DATE: 20201217
